FAERS Safety Report 7579961-8 (Version None)
Quarter: 2011Q2

REPORT INFORMATION
  Report Type: 
  Country: None (occurrence: None)
  Receive Date: 20110527
  Receipt Date: 20101018
  Transmission Date: 20111010
  Serious: Yes (Other)
  Sender: FDA-Public Use
  Company Number: US200910005198

PATIENT
  Age: 57 Year
  Sex: Female
  Weight: 122.4 kg

DRUGS (3)
  1. EXENATIDE UNK STRENGTH PEN, DISPOSABLE DEVICE (EXENATIDE PEN (UNKNOWN [Concomitant]
  2. BYETTA [Suspect]
     Dates: start: 20070305, end: 20080914
  3. GLUCOPHAGE [Concomitant]

REACTIONS (1)
  - PANCREATITIS ACUTE [None]
